FAERS Safety Report 9147988 (Version 1)
Quarter: 2013Q1

REPORT INFORMATION
  Report Type: Spontaneous
  Country: DE (occurrence: DE)
  Receive Date: 20130307
  Receipt Date: 20130307
  Transmission Date: 20140127
  Serious: Yes (Death, Congenital Anomaly)
  Sender: FDA-Public Use
  Company Number: DE-MYLANLABS-2013S1004247

PATIENT
  Age: 0 Year
  Sex: Female
  Weight: 3.14 kg

DRUGS (2)
  1. VENLAFAXINE [Suspect]
     Dosage: 150 [MG/D ]/ BEGIN IN 2008, AFTERWARDS PSYCHO-THERAPY
     Route: 064
  2. FOLIC ACID [Concomitant]
     Route: 064
     Dates: start: 20110823, end: 20120126

REACTIONS (3)
  - Coarctation of the aorta [Fatal]
  - Foetal death [Not Recovered/Not Resolved]
  - Exposure during pregnancy [Unknown]
